FAERS Safety Report 17236564 (Version 1)
Quarter: 2020Q1

REPORT INFORMATION
  Report Type: Spontaneous
  Country: US (occurrence: US)
  Receive Date: 20200106
  Receipt Date: 20200106
  Transmission Date: 20200409
  Serious: No
  Sender: FDA-Public Use
  Company Number: US-MYLANLABS-2019M1133110

PATIENT
  Sex: Female
  Weight: 91 kg

DRUGS (1)
  1. LIDOCAINE PATCH [Suspect]
     Active Substance: LIDOCAINE
     Indication: BACK PAIN
     Dosage: 1 DOSAGE FORM, QD(DAILY)
     Route: 003
     Dates: start: 20191226

REACTIONS (4)
  - Off label use [Not Recovered/Not Resolved]
  - Dyspnoea [Unknown]
  - Product adhesion issue [Not Recovered/Not Resolved]
  - Product quality issue [Unknown]
